FAERS Safety Report 4805885-2 (Version None)
Quarter: 2005Q4

REPORT INFORMATION
  Report Type: 
  Country: None (occurrence: None)
  Receive Date: 20051019
  Receipt Date: 20051005
  Transmission Date: 20060501
  Serious: Yes (Hospitalization)
  Sender: FDA-Public Use
  Company Number: US-2005-020673

PATIENT
  Age: 60 Year
  Sex: Male
  Weight: 93.9 kg

DRUGS (9)
  1. BETAPACE [Suspect]
     Indication: CARDIOVASCULAR DISORDER
     Dosage: 40 MG, 2X/DAY ORAL
     Route: 048
  2. NESIRITIDE (NESIRITIDE) [Suspect]
     Indication: CARDIAC FAILURE
     Dosage: SEE IMAGE
     Route: 040
     Dates: start: 20050628, end: 20050628
  3. NESIRITIDE (NESIRITIDE) [Suspect]
     Indication: CARDIAC FAILURE
     Dosage: SEE IMAGE
     Route: 040
     Dates: start: 20050315
  4. LISINOPRIL [Suspect]
     Indication: CARDIOVASCULAR DISORDER
     Dosage: 2.5 MG, 1X/DAY, ORAL
     Route: 048
  5. DEMADEX (LORASEMIDE) [Suspect]
     Indication: CARDIOVASCULAR DISORDER
     Dosage: 50 MG, 1X/DAY ORAL
     Route: 048
  6. ZAROXOLYN [Suspect]
     Indication: CARDIOVASCULAR DISORDER
     Dosage: 2.5 MG, AS REQ'D ORAL
     Route: 048
  7. ALLOPURINOL [Concomitant]
  8. K-DUR 10 [Concomitant]
  9. PRAVACHOL [Concomitant]

REACTIONS (19)
  - ALANINE AMINOTRANSFERASE INCREASED [None]
  - ASPARTATE AMINOTRANSFERASE INCREASED [None]
  - BLOOD ALKALINE PHOSPHATASE INCREASED [None]
  - BLOOD CHLORIDE DECREASED [None]
  - BLOOD CREATININE INCREASED [None]
  - BLOOD GLUCOSE INCREASED [None]
  - BLOOD MAGNESIUM INCREASED [None]
  - BLOOD SODIUM DECREASED [None]
  - BLOOD UREA INCREASED [None]
  - CARDIAC FAILURE CONGESTIVE [None]
  - CONDITION AGGRAVATED [None]
  - HAEMATOCRIT DECREASED [None]
  - HAEMOGLOBIN DECREASED [None]
  - HYPOTENSION [None]
  - PCO2 INCREASED [None]
  - PO2 DECREASED [None]
  - POLYURIA [None]
  - PULMONARY OEDEMA [None]
  - RESPIRATORY DISTRESS [None]
